FAERS Safety Report 20640112 (Version 3)
Quarter: 2022Q2

REPORT INFORMATION
  Report Type: Spontaneous
  Country: JP (occurrence: JP)
  Receive Date: 20220326
  Receipt Date: 20220429
  Transmission Date: 20220721
  Serious: Yes (Death, Life-Threatening)
  Sender: FDA-Public Use
  Company Number: JP-CHUGAI-2022009781

PATIENT
  Age: 84 Year
  Sex: Male
  Weight: 66.7 kg

DRUGS (5)
  1. ACTEMRA [Suspect]
     Active Substance: TOCILIZUMAB
     Indication: COVID-19 pneumonia
     Dosage: SINGLE
     Route: 041
     Dates: start: 20220204, end: 20220204
  2. CEFTRIAXONE SODIUM [Concomitant]
     Active Substance: CEFTRIAXONE SODIUM
     Dosage: 2 GRAM, QD
     Route: 042
     Dates: start: 20220204, end: 20220210
  3. DEXMEDETOMIDINE [Concomitant]
     Active Substance: DEXMEDETOMIDINE
     Dosage: 200 MICROGRAM, TID
     Route: 042
     Dates: start: 20220204, end: 20220213
  4. PROPOFOL [Concomitant]
     Active Substance: PROPOFOL
     Dosage: 50 MILLILITER, TID
     Route: 042
     Dates: start: 20220204, end: 20220210
  5. VEKLURY [Concomitant]
     Active Substance: REMDESIVIR
     Dosage: 100 MILLIGRAM, BID
     Route: 042
     Dates: start: 20220204, end: 20220205

REACTIONS (5)
  - Disease progression [Fatal]
  - Staphylococcal bacteraemia [Not Recovered/Not Resolved]
  - Clostridium difficile colitis [Not Recovered/Not Resolved]
  - Device related infection [Not Recovered/Not Resolved]
  - Enterobacter infection [Not Recovered/Not Resolved]

NARRATIVE: CASE EVENT DATE: 20220212
